FAERS Safety Report 25806397 (Version 3)
Quarter: 2025Q4

REPORT INFORMATION
  Report Type: Spontaneous
  Country: EU (occurrence: EU)
  Receive Date: 20250916
  Receipt Date: 20251003
  Transmission Date: 20260118
  Serious: Yes (Other)
  Sender: AMGEN
  Company Number: EU-AMGEN-CZESP2025182199

PATIENT
  Age: 59 Year
  Sex: Male

DRUGS (3)
  1. KYPROLIS [Suspect]
     Active Substance: CARFILZOMIB
     Indication: Product used for unknown indication
     Dosage: 137 MILLIGRAM
     Route: 065
     Dates: start: 20241209, end: 20250428
  2. SARCLISA [Suspect]
     Active Substance: ISATUXIMAB-IRFC
     Indication: Product used for unknown indication
     Dosage: 800 MILLIGRAM, D 16
     Route: 065
     Dates: start: 20241209, end: 20250428
  3. DEXAMETHASONE [Suspect]
     Active Substance: DEXAMETHASONE
     Indication: Product used for unknown indication
     Dosage: UNK
     Route: 065
     Dates: start: 20241209, end: 20250428

REACTIONS (3)
  - Infected skin ulcer [Unknown]
  - Decubitus ulcer [Unknown]
  - Off label use [Unknown]

NARRATIVE: CASE EVENT DATE: 20241209
